FAERS Safety Report 8221600-7 (Version None)
Quarter: 2012Q1

REPORT INFORMATION
  Report Type: 
  Country: None (occurrence: None)
  Receive Date: 20120320
  Receipt Date: 20120310
  Transmission Date: 20120608
  Serious: Yes (Death, Other)
  Sender: FDA-Public Use
  Company Number: BR-GENZYME-FABR-1002380

PATIENT
  Sex: Male
  Weight: 55.8 kg

DRUGS (1)
  1. FABRAZYME [Suspect]
     Indication: FABRY'S DISEASE
     Dosage: 1 MG/KG, Q2W
     Route: 042
     Dates: start: 20111125

REACTIONS (2)
  - CRANIOCEREBRAL INJURY [None]
  - PNEUMONIA [None]
